FAERS Safety Report 20604736 (Version 2)
Quarter: 2022Q2

REPORT INFORMATION
  Report Type: Report from Study
  Country: ES (occurrence: None)
  Receive Date: 20220317
  Receipt Date: 20220415
  Transmission Date: 20220720
  Serious: Yes (Hospitalization)
  Sender: FDA-Public Use
  Company Number: ES-ROCHE-3047240

PATIENT
  Age: 42 Year
  Sex: Female
  Weight: 44 kg

DRUGS (9)
  1. IPATASERTIB [Suspect]
     Active Substance: IPATASERTIB
     Indication: Product used for unknown indication
     Route: 048
     Dates: start: 20210113, end: 20220307
  2. TRASTUZUMAB [Suspect]
     Active Substance: TRASTUZUMAB
     Indication: Product used for unknown indication
     Route: 041
     Dates: start: 20210113, end: 20220216
  3. PERTUZUMAB [Suspect]
     Active Substance: PERTUZUMAB
     Indication: Product used for unknown indication
     Route: 041
     Dates: start: 20210113, end: 20220216
  4. OMEPRAZOLE [Concomitant]
     Active Substance: OMEPRAZOLE
     Dosage: 20
     Dates: start: 20210127
  5. LOPERAMIDE [Concomitant]
     Active Substance: LOPERAMIDE
     Dosage: DAILY DOSE 2
     Dates: start: 20210203
  6. ALPRAZOLAM [Concomitant]
     Active Substance: ALPRAZOLAM
     Dates: start: 20211020
  7. ONDANSETRON [Concomitant]
     Active Substance: ONDANSETRON
     Dates: start: 20220112
  8. BUTYLSCOPOLAMINE [Concomitant]
     Active Substance: BUTYLSCOPOLAMINE
     Dates: start: 20220112
  9. ACETAMINOPHEN [Concomitant]
     Active Substance: ACETAMINOPHEN
     Dates: start: 20220119

REACTIONS (2)
  - Headache [Recovering/Resolving]
  - Central nervous system neoplasm [Recovering/Resolving]

NARRATIVE: CASE EVENT DATE: 20220307
